FAERS Safety Report 5925507-7 (Version None)
Quarter: 2008Q4

REPORT INFORMATION
  Report Type: 
  Country: None (occurrence: None)
  Receive Date: 20081021
  Receipt Date: 20081014
  Transmission Date: 20090506
  Serious: Yes (Hospitalization, Other)
  Sender: FDA-Public Use
  Company Number: PHHY2008GB23970

PATIENT
  Sex: Female

DRUGS (1)
  1. CLOZARIL [Suspect]
     Indication: SCHIZOPHRENIA
     Dosage: UNK
     Dates: start: 20080909

REACTIONS (5)
  - BODY TEMPERATURE INCREASED [None]
  - CARDIOMYOPATHY [None]
  - OXYGEN SATURATION DECREASED [None]
  - TACHYCARDIA [None]
  - TACHYPNOEA [None]
